FAERS Safety Report 15287766 (Version 1)
Quarter: 2018Q3

REPORT INFORMATION
  Report Type: Spontaneous
  Country: US (occurrence: US)
  Receive Date: 20180802
  Receipt Date: 20180802
  Transmission Date: 20181010
  Serious: Yes (Other)
  Sender: FDA-Public Use
  Company Number: None

PATIENT
  Age: 68 Year
  Sex: Female
  Weight: 78.75 kg

DRUGS (7)
  1. METOPROLOL SUCCINATE ER TAB 50MG [Suspect]
     Active Substance: METOPROLOL SUCCINATE
     Indication: HYPERTENSION
     Dosage: ?          QUANTITY:1 DF DOSAGE FORM;?
     Route: 048
     Dates: start: 20180520, end: 20180725
  2. SIMVASTATIN. [Concomitant]
     Active Substance: SIMVASTATIN
  3. ADVIL [Concomitant]
     Active Substance: IBUPROFEN
  4. COQ10 [Concomitant]
     Active Substance: UBIDECARENONE
  5. LISINOPRIL. [Concomitant]
     Active Substance: LISINOPRIL
  6. LISINOPRIL?HCZ [Concomitant]
  7. ASPIRIN. [Concomitant]
     Active Substance: ASPIRIN

REACTIONS (4)
  - Heart rate increased [None]
  - Hyperhidrosis [None]
  - Muscle spasms [None]
  - Night sweats [None]

NARRATIVE: CASE EVENT DATE: 20180520
